FAERS Safety Report 9642491 (Version 2)
Quarter: 2013Q4

REPORT INFORMATION
  Report Type: Spontaneous
  Country: SE (occurrence: SE)
  Receive Date: 20131024
  Receipt Date: 20131103
  Transmission Date: 20140711
  Serious: Yes (Life-Threatening, Hospitalization)
  Sender: FDA-Public Use
  Company Number: SE-JNJFOC-20131012321

PATIENT
  Age: 42 Year
  Sex: Female

DRUGS (1)
  1. IPREN [Suspect]
     Indication: MIGRAINE
     Route: 048
     Dates: start: 2002, end: 201212

REACTIONS (5)
  - Chest discomfort [Recovered/Resolved]
  - Anaphylactic shock [Recovered/Resolved]
  - Pruritus [Recovered/Resolved]
  - Palpitations [Recovered/Resolved]
  - Urticaria [Recovered/Resolved]
